FAERS Safety Report 4432248-4 (Version None)
Quarter: 2004Q3

REPORT INFORMATION
  Report Type: 
  Country: None (occurrence: None)
  Receive Date: 20040825
  Receipt Date: 20040726
  Transmission Date: 20050211
  Serious: Yes (Hospitalization, Other)
  Sender: FDA-Public Use
  Company Number: JP-MERCK-0407USA02473

PATIENT
  Age: 72 Year
  Sex: Female

DRUGS (9)
  1. CARBENIN [Concomitant]
     Route: 041
     Dates: start: 20040512, end: 20040523
  2. CLINDAMYCIN HCL [Concomitant]
     Route: 041
     Dates: start: 20040512, end: 20040523
  3. PEPCID RPD [Suspect]
     Indication: REFLUX OESOPHAGITIS
     Route: 048
     Dates: start: 20040508, end: 20040617
  4. PEPCID [Concomitant]
     Route: 042
     Dates: start: 20040512, end: 20040518
  5. MICAFUNGIN [Suspect]
     Indication: PULMONARY MYCOSIS
     Route: 042
     Dates: start: 20040523, end: 20040617
  6. MIDAZOLAM HCL [Suspect]
     Indication: SEDATION
     Route: 042
     Dates: start: 20040523, end: 20040625
  7. TARGOCID [Concomitant]
     Route: 042
     Dates: start: 20040523, end: 20040613
  8. TARGOCID [Concomitant]
     Route: 065
  9. VANCOMYCIN [Concomitant]
     Route: 042
     Dates: start: 20040614, end: 20040617

REACTIONS (9)
  - ALANINE AMINOTRANSFERASE INCREASED [None]
  - ASPARTATE AMINOTRANSFERASE INCREASED [None]
  - BLOOD PRESSURE DECREASED [None]
  - ERYTHEMA MULTIFORME [None]
  - GENERALISED OEDEMA [None]
  - HAEMODIALYSIS [None]
  - HYPERSENSITIVITY [None]
  - TOXIC SKIN ERUPTION [None]
  - URINE OUTPUT DECREASED [None]
